FAERS Safety Report 6798327-1 (Version None)
Quarter: 2010Q2

REPORT INFORMATION
  Report Type: 
  Country: None (occurrence: None)
  Receive Date: 20100622
  Receipt Date: 20100402
  Transmission Date: 20101027
  Serious: No
  Sender: FDA-Public Use
  Company Number: US-WYE-H14510210

PATIENT
  Age: 29 Year
  Sex: Female

DRUGS (3)
  1. LYBREL [Suspect]
     Indication: DRUG USE FOR UNKNOWN INDICATION
     Dosage: 90/20 MCG DAILY
  2. LAMOTRIGINE [Concomitant]
  3. BUPROPION HCL [Concomitant]

REACTIONS (2)
  - FEELING ABNORMAL [None]
  - PRODUCT QUALITY ISSUE [None]
